FAERS Safety Report 5743441-2 (Version None)
Quarter: 2008Q2

REPORT INFORMATION
  Report Type: 
  Country: None (occurrence: None)
  Receive Date: 20080519
  Receipt Date: 20080519
  Transmission Date: 20081010
  Serious: Yes (Death)
  Sender: FDA-Public Use
  Company Number: None

PATIENT
  Age: 51 Year
  Sex: Male
  Weight: 83.9154 kg

DRUGS (1)
  1. DIGITEK ACTAVIS TOTOWA LLC/BERTEK [Suspect]
     Indication: CARDIAC FAILURE CONGESTIVE
     Dates: start: 20010101, end: 20070904

REACTIONS (4)
  - ASTHENIA [None]
  - FATIGUE [None]
  - MALAISE [None]
  - SUDDEN DEATH [None]
